FAERS Safety Report 19242907 (Version 1)
Quarter: 2021Q2

REPORT INFORMATION
  Report Type: Spontaneous
  Country: US (occurrence: US)
  Receive Date: 20210511
  Receipt Date: 20210511
  Transmission Date: 20210717
  Serious: No
  Sender: FDA-Public Use
  Company Number: US-PFIZER INC-2021476740

PATIENT
  Age: 67 Year
  Sex: Female

DRUGS (1)
  1. IBRANCE [Suspect]
     Active Substance: PALBOCICLIB
     Dosage: 125 MG
     Dates: start: 20210401

REACTIONS (4)
  - Fatigue [Unknown]
  - Constipation [Unknown]
  - Increased tendency to bruise [Unknown]
  - Epistaxis [Unknown]

NARRATIVE: CASE EVENT DATE: 202104
